FAERS Safety Report 7608981-X (Version None)
Quarter: 2011Q3

REPORT INFORMATION
  Report Type: 
  Country: None (occurrence: None)
  Receive Date: 20110714
  Receipt Date: 20110706
  Transmission Date: 20111222
  Serious: Yes (Hospitalization)
  Sender: FDA-Public Use
  Company Number: IT-GLAXOSMITHKLINE-B0733002A

PATIENT
  Sex: Male

DRUGS (14)
  1. TAMSULOSIN HYDROCHLORIDE [Concomitant]
  2. LEVOTHYROXINE SODIUM [Concomitant]
     Indication: HYPOTHYROIDISM
  3. NITROGLYN 2% OINTMENT [Concomitant]
     Route: 062
  4. FERROGRAD C [Concomitant]
  5. CHOLECALCIFEROL [Concomitant]
  6. ALLOPURINOL [Concomitant]
  7. ALDACTONE [Suspect]
     Indication: HYPERTENSION
     Route: 048
     Dates: start: 20100624, end: 20110622
  8. CEFTAZIDIME [Suspect]
     Indication: PNEUMONIA
     Dosage: 2G PER DAY
     Route: 042
     Dates: start: 20110507, end: 20110523
  9. LASIX [Concomitant]
  10. ASPIRIN [Concomitant]
  11. TYGACIL [Concomitant]
     Route: 042
     Dates: start: 20110522, end: 20110607
  12. NEXIUM [Concomitant]
  13. TARGOCID [Suspect]
     Indication: PNEUMONIA
     Route: 042
     Dates: start: 20110507, end: 20110523
  14. FOLINA [Concomitant]

REACTIONS (7)
  - BLOOD UREA INCREASED [None]
  - RENAL FAILURE [None]
  - HYPERKALAEMIA [None]
  - BLOOD SODIUM DECREASED [None]
  - BLOOD CREATININE INCREASED [None]
  - BLOOD POTASSIUM INCREASED [None]
  - CREATININE RENAL CLEARANCE DECREASED [None]
